FAERS Safety Report 9089543 (Version 1)
Quarter: 2013Q1

REPORT INFORMATION
  Report Type: Report from Study
  Country: US (occurrence: US)
  Receive Date: 20130201
  Receipt Date: 20130201
  Transmission Date: 20140127
  Serious: No
  Sender: FDA-Public Use
  Company Number: US-ABBOTT-12P-163-1019531-00

PATIENT
  Age: 63 Year
  Sex: Male

DRUGS (6)
  1. HUMIRA [Suspect]
     Indication: CROHN^S DISEASE
     Dates: end: 201208
  2. HUMIRA [Suspect]
     Dates: start: 201208
  3. HUMIRA [Suspect]
  4. KEPRA [Concomitant]
     Indication: PRODUCT USED FOR UNKNOWN INDICATION
     Dosage: 2 PILLS DAILY
  5. LASIX [Concomitant]
     Indication: JOINT SWELLING
     Dosage: 20MG DAILY
  6. TESTOSTERONE [Concomitant]
     Indication: PRODUCT USED FOR UNKNOWN INDICATION
     Dosage: EVERY 3 WEEKS

REACTIONS (2)
  - Diarrhoea [Not Recovered/Not Resolved]
  - Injection site pain [Unknown]
